FAERS Safety Report 6604276-1 (Version None)
Quarter: 2010Q1

REPORT INFORMATION
  Report Type: 
  Country: None (occurrence: None)
  Receive Date: 20100226
  Receipt Date: 20090803
  Transmission Date: 20100710
  Serious: Yes (Other)
  Sender: FDA-Public Use
  Company Number: A0800113A

PATIENT
  Age: 13 Year
  Sex: Male

DRUGS (3)
  1. LAMICTAL CD [Suspect]
     Indication: EPILEPSY
     Dosage: 100MG PER DAY
     Route: 048
     Dates: start: 20060316, end: 20060316
  2. LAMOTRIGINE [Suspect]
     Indication: EPILEPSY
     Dosage: 150MG TWICE PER DAY
     Route: 048
     Dates: start: 20090601, end: 20090728
  3. NO CONCURRENT MEDICATION [Concomitant]

REACTIONS (2)
  - CONVULSION [None]
  - DRUG INEFFECTIVE [None]
